FAERS Safety Report 8560131-1 (Version None)
Quarter: 2012Q2

REPORT INFORMATION
  Report Type: 
  Country: None (occurrence: None)
  Receive Date: 20120418
  Receipt Date: 20110321
  Transmission Date: 20120825
  Serious: Yes (Other)
  Sender: FDA-Public Use
  Company Number: PHHY2011US23820

PATIENT
  Age: 66 Year
  Sex: Female

DRUGS (18)
  1. DIOVAN [Suspect]
     Dosage: 160 MG, QD
  2. SPIRIVA [Concomitant]
  3. NEXIUM [Concomitant]
  4. VITAMIN D [Concomitant]
  5. HYDROCHLOROTHIAZIDE [Suspect]
  6. SINGULAIR [Concomitant]
  7. PROPAFENONE HCL [Suspect]
  8. BYSTOLIC [Suspect]
  9. NEURONTIN [Concomitant]
  10. ALVESCO [Concomitant]
  11. XOPENEX [Concomitant]
  12. LEFLUNOMIDE [Concomitant]
  13. SALAGEN [Concomitant]
  14. ZOLPIDEM TARTRATE [Concomitant]
  15. SKELAXIN [Concomitant]
  16. LEVOTHYROXINE SODIUM [Concomitant]
  17. CLARINEX (LORATADINE, PSEUDOEPHEDRINE SULFATE) [Concomitant]
  18. NITROSTAT [Concomitant]

REACTIONS (4)
  - BLOOD PRESSURE INCREASED [None]
  - BLOOD PRESSURE DECREASED [None]
  - LOSS OF CONSCIOUSNESS [None]
  - DIZZINESS [None]
